FAERS Safety Report 8840131 (Version 1)
Quarter: 2012Q4

REPORT INFORMATION
  Report Type: 
  Country: US (occurrence: US)
  Receive Date: 20121015
  Receipt Date: 20121015
  Transmission Date: 20130627
  Serious: No
  Sender: FDA-Public Use
  Company Number: US-PFIZER INC-2012255067

PATIENT
  Age: 50 Year
  Sex: Female
  Weight: 118 kg

DRUGS (6)
  1. NEURONTIN [Suspect]
     Indication: FIBROMYALGIA
     Dosage: 300 mg, 4x/day
     Dates: start: 201203
  2. NEURONTIN [Suspect]
     Indication: DIABETIC NEUROPATHY
  3. CYMBALTA [Concomitant]
     Indication: DEPRESSION
     Dosage: 60 mg, 2x/day
  4. CYMBALTA [Concomitant]
     Indication: FIBROMYALGIA
  5. METFORMIN [Concomitant]
     Indication: GLUCOSE TOLERANCE IMPAIRED
     Dosage: 500 mg, 2x/day
     Dates: start: 201201
  6. LIDOCAINE [Concomitant]
     Indication: ARTHRITIS
     Dosage: UNK, every 12 hours

REACTIONS (1)
  - Drug ineffective [Unknown]
